FAERS Safety Report 19065511 (Version 1)
Quarter: 2021Q1

REPORT INFORMATION
  Report Type: Report from Study
  Country: CO (occurrence: CO)
  Receive Date: 20210327
  Receipt Date: 20210327
  Transmission Date: 20210420
  Serious: Yes (Other)
  Sender: FDA-Public Use
  Company Number: NVSC2020CO192954

PATIENT
  Sex: Female
  Weight: 110 kg

DRUGS (1)
  1. COSENTYX [Suspect]
     Active Substance: SECUKINUMAB
     Indication: PSORIATIC ARTHROPATHY
     Dosage: 300 MG, QMO
     Route: 058
     Dates: start: 20180106, end: 202005

REACTIONS (11)
  - Placental disorder [Unknown]
  - Pre-eclampsia [Unknown]
  - Gestational diabetes [Unknown]
  - Hypoaesthesia [Not Recovered/Not Resolved]
  - Vaginal haemorrhage [Recovered/Resolved]
  - Peripheral swelling [Unknown]
  - Blood pressure increased [Unknown]
  - Normal newborn [Unknown]
  - Hypertension [Unknown]
  - Psoriatic arthropathy [Unknown]
  - Maternal exposure during pregnancy [Not Recovered/Not Resolved]

NARRATIVE: CASE EVENT DATE: 2020
